FAERS Safety Report 6003091-X (Version None)
Quarter: 2008Q4

REPORT INFORMATION
  Report Type: 
  Country: None (occurrence: None)
  Receive Date: 20081215
  Receipt Date: 20081215
  Transmission Date: 20090506
  Serious: Yes (Disabling, Other)
  Sender: FDA-Public Use
  Company Number: None

PATIENT
  Age: 42 Year
  Sex: Male
  Weight: 97.5234 kg

DRUGS (1)
  1. LYRICA [Suspect]
     Indication: FIBROMYALGIA
     Dosage: 450MG DAY 3X PO
     Route: 048
     Dates: start: 20071015, end: 20081215

REACTIONS (3)
  - DENTAL CARIES [None]
  - TOOTH DISORDER [None]
  - WEIGHT INCREASED [None]
